FAERS Safety Report 6609642-6 (Version None)
Quarter: 2010Q1

REPORT INFORMATION
  Report Type: 
  Country: None (occurrence: None)
  Receive Date: 20100302
  Receipt Date: 20100218
  Transmission Date: 20100710
  Serious: Yes (Other)
  Sender: FDA-Public Use
  Company Number: US-SANOFI-AVENTIS-200918946US

PATIENT
  Sex: Female

DRUGS (10)
  1. LANTUS [Suspect]
     Indication: TYPE 2 DIABETES MELLITUS
     Dosage: DOSE AS USED: UNK  DOSE:80 UNIT(S)
     Route: 058
     Dates: start: 20041109, end: 20091024
  2. SOLOSTAR [Suspect]
     Indication: TYPE 2 DIABETES MELLITUS
     Dates: end: 20091024
  3. METFORMIN HYDROCHLORIDE [Concomitant]
     Route: 065
  4. SEROQUEL [Concomitant]
     Route: 065
  5. PLAVIX [Concomitant]
     Route: 048
  6. FOSINOPRIL SODIUM [Concomitant]
     Route: 065
  7. COREG [Concomitant]
     Route: 065
  8. ZOCOR [Concomitant]
     Route: 065
  9. LASIX [Concomitant]
     Route: 065
  10. PRILOSEC [Concomitant]
     Route: 065

REACTIONS (2)
  - CUTANEOUS AMYLOIDOSIS [None]
  - SUBCUTANEOUS NODULE [None]
